FAERS Safety Report 4396820-2 (Version None)
Quarter: 2004Q3

REPORT INFORMATION
  Report Type: 
  Country: None (occurrence: None)
  Receive Date: 20040709
  Receipt Date: 20040625
  Transmission Date: 20050211
  Serious: Yes (Death, Hospitalization)
  Sender: FDA-Public Use
  Company Number: RENA-11084

PATIENT
  Age: 69 Year
  Sex: Male

DRUGS (8)
  1. PHOSBLOCK - 250 MG TABLET [Suspect]
     Indication: HYPERPHOSPHATAEMIA
     Dosage: 2.25 G QD PO
     Route: 048
     Dates: start: 20040614
  2. PHOSBLOCK - 250 MG TABLET [Suspect]
     Indication: HYPERPHOSPHATAEMIA
     Dosage: 1.5 G QD PO
     Route: 048
     Dates: start: 20040426, end: 20040613
  3. NICORANDIL [Concomitant]
  4. PANTETHINE [Concomitant]
  5. LIMAPROST ALFADEX [Concomitant]
  6. DISOPYRAMIDE [Concomitant]
  7. PRECIPITATED CALCIUM CARBONATE [Concomitant]
  8. TICLOPIDINE HCL [Concomitant]

REACTIONS (1)
  - SMALL INTESTINAL PERFORATION [None]
